FAERS Safety Report 7883231-8 (Version None)
Quarter: 2011Q4

REPORT INFORMATION
  Report Type: 
  Country: None (occurrence: None)
  Receive Date: 20111031
  Receipt Date: 20111031
  Transmission Date: 20120403
  Serious: No
  Sender: FDA-Public Use
  Company Number: None

PATIENT
  Age: 55 Year
  Sex: Male
  Weight: 107.0489 kg

DRUGS (2)
  1. DIAZEPAM 10MG DIAZEPAM [Suspect]
     Dates: start: 20080101
  2. OXYCODONE 2.5/APAP 500 [Suspect]
     Indication: INTERVERTEBRAL DISC PROTRUSION
     Dates: start: 20080101

REACTIONS (2)
  - PRODUCT SUBSTITUTION ISSUE [None]
  - DRUG INEFFECTIVE [None]
